FAERS Safety Report 5345389-4 (Version None)
Quarter: 2007Q2

REPORT INFORMATION
  Report Type: 
  Country: None (occurrence: None)
  Receive Date: 20070601
  Receipt Date: 20070516
  Transmission Date: 20071010
  Serious: Yes (Life-Threatening, Hospitalization)
  Sender: FDA-Public Use
  Company Number: DSA_29938_2007

PATIENT
  Sex: Female

DRUGS (2)
  1. TAVOR /00273201/ (TAVOR) 1 DF [Suspect]
     Dosage: (50 DF 1X ORAL)
     Route: 048
     Dates: start: 20070516, end: 20070516
  2. GLADEM (GLADEM) 50 MG (NOT SPECIFIED) [Suspect]
     Dosage: (1000 MG 1X ORAL)
     Route: 048
     Dates: start: 20070516, end: 20070516

REACTIONS (5)
  - HYPOTENSION [None]
  - MULTIPLE DRUG OVERDOSE [None]
  - SOMNOLENCE [None]
  - SUICIDE ATTEMPT [None]
  - TACHYCARDIA [None]
